FAERS Safety Report 7690180-7 (Version None)
Quarter: 2011Q3

REPORT INFORMATION
  Report Type: 
  Country: None (occurrence: None)
  Receive Date: 20110811
  Receipt Date: 20110801
  Transmission Date: 20111222
  Serious: Yes (Hospitalization, Other)
  Sender: FDA-Public Use
  Company Number: 2011SP036464

PATIENT
  Sex: Male

DRUGS (2)
  1. RIBAVIRIN [Suspect]
     Indication: HEPATITIS C
     Dates: start: 20110719
  2. PEGASYS [Suspect]
     Indication: HEPATITIS C
     Dates: start: 20110719

REACTIONS (3)
  - CHOLELITHIASIS [None]
  - WEIGHT DECREASED [None]
  - PANCREATITIS [None]
